FAERS Safety Report 18917544 (Version 1)
Quarter: 2021Q1

REPORT INFORMATION
  Report Type: Spontaneous
  Country: US (occurrence: US)
  Receive Date: 20210219
  Receipt Date: 20210219
  Transmission Date: 20210420
  Serious: No
  Sender: FDA-Public Use
  Company Number: US-PERRIGO-20US018432

PATIENT
  Sex: Female
  Weight: 58.96 kg

DRUGS (2)
  1. LOPERAMIDE HYDROCHLORIDE. [Suspect]
     Active Substance: LOPERAMIDE HYDROCHLORIDE
     Dosage: 4 MG, 3 TO 4 TIMES DAILY, PRN
     Route: 048
     Dates: start: 20201222
  2. LOPERAMIDE HYDROCHLORIDE. [Suspect]
     Active Substance: LOPERAMIDE HYDROCHLORIDE
     Indication: DIARRHOEA
     Dosage: 4 MG, 3 TO 4 TIMES DAILY, PRN
     Route: 048
     Dates: end: 202012

REACTIONS (2)
  - Incorrect product administration duration [Not Recovered/Not Resolved]
  - Intentional product use issue [Unknown]
